FAERS Safety Report 11258607 (Version 1)
Quarter: 2015Q3

REPORT INFORMATION
  Report Type: Spontaneous
  Country: US (occurrence: None)
  Receive Date: 20150709
  Receipt Date: 20150709
  Transmission Date: 20151125
  Serious: Yes (Other)
  Sender: FDA-Public Use
  Company Number: None

PATIENT
  Age: 30 Year
  Sex: Female

DRUGS (1)
  1. HUMIRA [Suspect]
     Active Substance: ADALIMUMAB
     Indication: PSORIASIS
     Dosage: Q14D
     Route: 058
     Dates: start: 20150618, end: 20150702

REACTIONS (3)
  - Nausea [None]
  - Headache [None]
  - Dizziness [None]

NARRATIVE: CASE EVENT DATE: 20150702
